FAERS Safety Report 5542029-6 (Version None)
Quarter: 2007Q4

REPORT INFORMATION
  Report Type: 
  Country: None (occurrence: None)
  Receive Date: 20071210
  Receipt Date: 20071204
  Transmission Date: 20080405
  Serious: Yes (Death, Disabling)
  Sender: FDA-Public Use
  Company Number: GB-ASTRAZENECA-2007GB02359

PATIENT
  Age: 71 Year
  Sex: Female

DRUGS (1)
  1. SEROQUEL [Suspect]
     Indication: DEMENTIA ALZHEIMER'S TYPE
     Dosage: 25 MG ONCE OR TWICE A DAY
     Route: 048
     Dates: start: 20060701

REACTIONS (12)
  - ASTHENIA [None]
  - BODY TEMPERATURE INCREASED [None]
  - DIZZINESS [None]
  - HYPERHIDROSIS [None]
  - HYPERTHERMIA [None]
  - MUSCLE RIGIDITY [None]
  - NEUROLEPTIC MALIGNANT SYNDROME [None]
  - PYREXIA [None]
  - SOMNOLENCE [None]
  - THROAT TIGHTNESS [None]
  - URINE COLOUR ABNORMAL [None]
  - URINE FLOW DECREASED [None]
